FAERS Safety Report 5663619-6 (Version None)
Quarter: 2008Q1

REPORT INFORMATION
  Report Type: 
  Country: None (occurrence: None)
  Receive Date: 20080307
  Receipt Date: 20080221
  Transmission Date: 20080703
  Serious: Yes (Disabling)
  Sender: FDA-Public Use
  Company Number: 2008S1003052

PATIENT
  Age: 82 Year
  Sex: Female

DRUGS (8)
  1. VERAPAMIL [Suspect]
     Indication: HYPERTENSION
     Dosage: 240 MG;DAILY; : 280 MG;DAILY;
     Dates: start: 20071101, end: 20080104
  2. VERAPAMIL [Suspect]
     Indication: HYPERTENSION
     Dosage: 240 MG;DAILY; : 280 MG;DAILY;
     Dates: start: 20080104, end: 20080125
  3. FUROSEMIDE [Concomitant]
  4. OMEPRAZOLE [Concomitant]
  5. PARACETAMOL [Concomitant]
  6. SPIRONOLACTONE [Concomitant]
  7. VERAPAMIL [Concomitant]
  8. VERAPAMIL HYDROCHLORIDE [Suspect]
     Dates: start: 20070726, end: 20071101

REACTIONS (2)
  - MUSCULOSKELETAL STIFFNESS [None]
  - MYALGIA [None]
